FAERS Safety Report 17164219 (Version 3)
Quarter: 2020Q1

REPORT INFORMATION
  Report Type: Spontaneous
  Country: US (occurrence: US)
  Receive Date: 20191217
  Receipt Date: 20200214
  Transmission Date: 20200409
  Serious: No
  Sender: FDA-Public Use
  Company Number: US-PFIZER INC-2019542231

PATIENT
  Age: 71 Year
  Sex: Male
  Weight: 120.18 kg

DRUGS (2)
  1. LYRICA [Suspect]
     Active Substance: PREGABALIN
     Indication: PARAESTHESIA
     Dosage: 75 MG, 2X/DAY (1 CAPSULE TWICE DAILY)
     Route: 048
     Dates: end: 20191202
  2. LYRICA [Suspect]
     Active Substance: PREGABALIN
     Indication: NEUROPATHY PERIPHERAL

REACTIONS (10)
  - Headache [Unknown]
  - Malaise [Unknown]
  - Pain [Unknown]
  - Feeling abnormal [Unknown]
  - Drug ineffective [Unknown]
  - Hot flush [Recovered/Resolved]
  - Nausea [Recovered/Resolved]
  - Emotional distress [Unknown]
  - Dizziness [Recovered/Resolved]
  - Vision blurred [Recovered/Resolved]
